FAERS Safety Report 17710874 (Version 1)
Quarter: 2020Q2

REPORT INFORMATION
  Report Type: Report from Study
  Country: DE (occurrence: CN)
  Receive Date: 20200427
  Receipt Date: 20200427
  Transmission Date: 20200714
  Serious: Yes (Other)
  Sender: FDA-Public Use
  Company Number: CN-ELI_LILLY_AND_COMPANY-CN202004008873

PATIENT
  Age: 61 Year
  Sex: Male
  Weight: 63 kg

DRUGS (5)
  1. FLUOROURACIL. [Concomitant]
     Active Substance: FLUOROURACIL
     Indication: COLON CANCER
     Dosage: 400 MG/M2, 2/M
     Route: 042
     Dates: start: 20190202
  2. CETUXIMAB. [Suspect]
     Active Substance: CETUXIMAB
     Indication: COLON CANCER
     Dosage: 500 MG/M2, UNKNOWN
     Route: 042
     Dates: start: 20190216
  3. CALCIUM FOLINATE [Concomitant]
     Active Substance: LEUCOVORIN CALCIUM
     Indication: COLON CANCER
     Dosage: 400 MG/M2, UNKNOWN
     Route: 042
     Dates: start: 20190202
  4. FLUOROURACIL. [Concomitant]
     Active Substance: FLUOROURACIL
     Dosage: 2400 MG/M2, 2/M
     Route: 042
     Dates: start: 20190202
  5. OXALIPLATIN. [Concomitant]
     Active Substance: OXALIPLATIN
     Indication: COLON CANCER
     Dosage: 85 MG/M2, 140 MG
     Route: 042
     Dates: start: 20190202

REACTIONS (2)
  - Off label use [Unknown]
  - Leukopenia [Unknown]

NARRATIVE: CASE EVENT DATE: 2019
